FAERS Safety Report 6572945-8 (Version None)
Quarter: 2010Q1

REPORT INFORMATION
  Report Type: 
  Country: None (occurrence: None)
  Receive Date: 20100208
  Receipt Date: 20100128
  Transmission Date: 20100710
  Serious: Yes (Hospitalization)
  Sender: FDA-Public Use
  Company Number: US-BIOGENIDEC-2008BI016696

PATIENT
  Age: 55 Year
  Sex: Female
  Weight: 86 kg

DRUGS (3)
  1. AVONEX [Suspect]
     Indication: MULTIPLE SCLEROSIS
     Route: 030
     Dates: start: 20030916, end: 20040501
  2. AVONEX [Suspect]
     Route: 030
     Dates: start: 20040501, end: 20080628
  3. AVONEX [Suspect]
     Route: 030

REACTIONS (7)
  - ABDOMINAL PAIN LOWER [None]
  - CHEST PAIN [None]
  - CYSTITIS INTERSTITIAL [None]
  - GASTRITIS [None]
  - PANCREATITIS RELAPSING [None]
  - PELVIC FLUID COLLECTION [None]
  - SPHINCTER OF ODDI DYSFUNCTION [None]
